FAERS Safety Report 21559106 (Version 1)
Quarter: 2022Q4

REPORT INFORMATION
  Report Type: Spontaneous
  Country: US (occurrence: US)
  Receive Date: 20221107
  Receipt Date: 20221107
  Transmission Date: 20230113
  Serious: No
  Sender: FDA-Public Use
  Company Number: USA--2022-US-000342

PATIENT
  Sex: Female

DRUGS (1)
  1. EPINASTINE HYDROCHLORIDE [Suspect]
     Active Substance: EPINASTINE HYDROCHLORIDE

REACTIONS (1)
  - Abdominal discomfort [Unknown]

NARRATIVE: CASE EVENT DATE: 20220522
